FAERS Safety Report 9779664 (Version 2)
Quarter: 2014Q1

REPORT INFORMATION
  Report Type: Report from Study
  Country: JP (occurrence: JP)
  Receive Date: 20131223
  Receipt Date: 20140110
  Transmission Date: 20141002
  Serious: Yes (Death, Other)
  Sender: FDA-Public Use
  Company Number: PHHY2013JP150584

PATIENT
  Age: 78 Year
  Sex: Male
  Weight: 72 kg

DRUGS (7)
  1. INDACATEROL [Suspect]
     Indication: CHRONIC OBSTRUCTIVE PULMONARY DISEASE
     Dosage: 150 UG, DAILY
     Route: 055
     Dates: start: 20130215
  2. SPIRIVA [Concomitant]
     Indication: CHRONIC OBSTRUCTIVE PULMONARY DISEASE
     Dosage: 18 UG, UNK
     Route: 055
     Dates: start: 20130618
  3. AMARYL [Concomitant]
     Indication: DIABETES MELLITUS
     Dosage: 1 MG, UNK
     Route: 048
  4. AMLODIN [Concomitant]
     Indication: HYPERTENSION
     Dosage: 5 MG, UNK
     Route: 048
  5. ZYLORIC [Concomitant]
     Indication: HYPERURICAEMIA
     Dosage: 100 MG, UNK
     Route: 048
  6. JANUVIA [Concomitant]
     Indication: DIABETES MELLITUS
     Dosage: 50 MG, UNK
     Route: 048
  7. PRORENAL [Concomitant]
     Indication: LUMBAR SPINAL STENOSIS
     Dosage: 15 UG, UNK
     Route: 048

REACTIONS (7)
  - Cerebral infarction [Fatal]
  - Aspiration [Fatal]
  - Exposure to toxic agent [Fatal]
  - Cardio-respiratory arrest [Fatal]
  - Acute respiratory distress syndrome [Fatal]
  - Multi-organ failure [Fatal]
  - Pneumonia [Recovering/Resolving]
